FAERS Safety Report 16119611 (Version 1)
Quarter: 2019Q1

REPORT INFORMATION
  Report Type: Spontaneous
  Country: US (occurrence: US)
  Receive Date: 20190326
  Receipt Date: 20190326
  Transmission Date: 20190418
  Serious: Yes (Death)
  Sender: FDA-Public Use
  Company Number: US-VIFOR (INTERNATIONAL) INC.-VIT-2019-02658

PATIENT
  Age: 67 Year
  Sex: Female

DRUGS (14)
  1. EFFEXOR XR [Concomitant]
     Active Substance: VENLAFAXINE HYDROCHLORIDE
  2. IMODIUM [Concomitant]
     Active Substance: LOPERAMIDE HYDROCHLORIDE
  3. REQUIP [Concomitant]
     Active Substance: ROPINIROLE HYDROCHLORIDE
     Dosage: 0.25 UNSPECIFIED UNIT
  4. VELTASSA [Suspect]
     Active Substance: PATIROMER
     Indication: PRODUCT USED FOR UNKNOWN INDICATION
     Route: 048
     Dates: start: 20180424
  5. METOPROLOL. [Concomitant]
     Active Substance: METOPROLOL
  6. AMBIEN CR [Concomitant]
     Active Substance: ZOLPIDEM TARTRATE
  7. FAMOTIDINE. [Concomitant]
     Active Substance: FAMOTIDINE
  8. RENAL [Concomitant]
  9. SYNTHROID [Concomitant]
     Active Substance: LEVOTHYROXINE SODIUM
  10. ATIVAN [Concomitant]
     Active Substance: LORAZEPAM
  11. SENSIPAR [Concomitant]
     Active Substance: CINACALCET HYDROCHLORIDE
  12. PHOSLO [Concomitant]
     Active Substance: CALCIUM ACETATE
  13. ABILIFY [Concomitant]
     Active Substance: ARIPIPRAZOLE
  14. PROCARDIA XL [Concomitant]
     Active Substance: NIFEDIPINE

REACTIONS (1)
  - Death [Fatal]
